FAERS Safety Report 15878936 (Version 1)
Quarter: 2019Q1

REPORT INFORMATION
  Report Type: Spontaneous
  Country: US (occurrence: US)
  Receive Date: 20190125
  Receipt Date: 20190125
  Transmission Date: 20190417
  Serious: Yes (Disabling, Other)
  Sender: FDA-Public Use
  Company Number: None

PATIENT
  Age: 19 Year
  Sex: Female
  Weight: 60.75 kg

DRUGS (8)
  1. ALEVE [Concomitant]
     Active Substance: NAPROXEN SODIUM
  2. VP SHUNT [Concomitant]
  3. MULTIVITAMIN [Concomitant]
     Active Substance: VITAMINS
  4. NORETHINDRONE. [Concomitant]
     Active Substance: NORETHINDRONE
  5. SYNTHROID [Concomitant]
     Active Substance: LEVOTHYROXINE SODIUM
  6. HEMP OIL [Concomitant]
     Active Substance: CANNABIS SATIVA SEED OIL
  7. LUPRON DEPOT [Suspect]
     Active Substance: LEUPROLIDE ACETATE
     Indication: ENDOMETRIOSIS
     Dosage: INTRAMUSCULAR; 1 SHOT/3 MONTHS?
     Route: 030
     Dates: start: 20170105, end: 20170705
  8. TIZANIDINE. [Concomitant]
     Active Substance: TIZANIDINE

REACTIONS (6)
  - Vulvovaginal pain [None]
  - Tooth loss [None]
  - Cystitis interstitial [None]
  - Urinary bladder atrophy [None]
  - Bone loss [None]
  - Atrophic vulvovaginitis [None]

NARRATIVE: CASE EVENT DATE: 20170105
